FAERS Safety Report 24096764 (Version 1)
Quarter: 2024Q3

REPORT INFORMATION
  Report Type: Spontaneous
  Country: US (occurrence: US)
  Receive Date: 20240716
  Receipt Date: 20240716
  Transmission Date: 20241016
  Serious: Yes (Hospitalization, Other)
  Sender: EMERGENT BIOSOLUTIONS
  Company Number: US-Emergent Biosolutions-24000100

PATIENT
  Age: 66 Year
  Sex: Female

DRUGS (5)
  1. NALOXONE HYDROCHLORIDE [Suspect]
     Active Substance: NALOXONE HYDROCHLORIDE
     Indication: Overdose
     Dosage: 04 MILLIGRAM
     Route: 045
  2. NALOXONE HYDROCHLORIDE [Suspect]
     Active Substance: NALOXONE HYDROCHLORIDE
     Dosage: 02 MILLIGRAM
     Route: 042
  3. NALOXONE HYDROCHLORIDE [Suspect]
     Active Substance: NALOXONE HYDROCHLORIDE
     Dosage: 02 MILLIGRAM
     Route: 042
  4. MORPHINE [Concomitant]
     Active Substance: MORPHINE
     Indication: Pain
     Dosage: 15 MILLIGRAM
     Route: 065
  5. OXYCODONE [Concomitant]
     Active Substance: OXYCODONE
     Indication: Pain
     Dosage: 10 MILLIGRAM
     Route: 065

REACTIONS (2)
  - Non-cardiogenic pulmonary oedema [Recovering/Resolving]
  - Drug withdrawal syndrome [Recovering/Resolving]
